FAERS Safety Report 8379730-5 (Version None)
Quarter: 2012Q2

REPORT INFORMATION
  Report Type: 
  Country: None (occurrence: None)
  Receive Date: 20120523
  Receipt Date: 20120516
  Transmission Date: 20120825
  Serious: No
  Sender: FDA-Public Use
  Company Number: US-PFIZER INC-2012119321

PATIENT
  Age: 80 Year
  Sex: Male

DRUGS (2)
  1. SUTENT [Suspect]
     Indication: RENAL CELL CARCINOMA
     Dosage: UNK
  2. SUTENT [Suspect]
     Indication: METASTASES TO LUNG

REACTIONS (1)
  - OEDEMA PERIPHERAL [None]
